FAERS Safety Report 5555881-5 (Version None)
Quarter: 2007Q4

REPORT INFORMATION
  Report Type: 
  Country: None (occurrence: None)
  Receive Date: 20071213
  Receipt Date: 20071119
  Transmission Date: 20080405
  Serious: No
  Sender: FDA-Public Use
  Company Number: US-BOEHRINGER INGELHEIM PHARMACEUTICALS, INC.-2007-BP-24901BP

PATIENT
  Sex: Male

DRUGS (3)
  1. FLOMAX [Suspect]
     Indication: BENIGN PROSTATIC HYPERPLASIA
     Route: 048
     Dates: start: 20070901, end: 20071118
  2. TOPROL-XL [Concomitant]
     Indication: HYPERTENSION
  3. HYZAAR [Concomitant]
     Indication: HYPERTENSION

REACTIONS (1)
  - LACRIMATION INCREASED [None]
